FAERS Safety Report 5986292-6 (Version None)
Quarter: 2008Q4

REPORT INFORMATION
  Report Type: 
  Country: None (occurrence: None)
  Receive Date: 20081209
  Receipt Date: 20081204
  Transmission Date: 20090506
  Serious: Yes (Death, Hospitalization)
  Sender: FDA-Public Use
  Company Number: US-CELGENEUS-163-21880-08101927

PATIENT
  Sex: Female

DRUGS (1)
  1. REVLIMID [Suspect]
     Route: 048
     Dates: start: 20080617, end: 20081001

REACTIONS (3)
  - CEREBRAL THROMBOSIS [None]
  - DISEASE PROGRESSION [None]
  - MULTIPLE MYELOMA [None]
